FAERS Safety Report 8523292-6 (Version None)
Quarter: 2012Q3

REPORT INFORMATION
  Report Type: 
  Country: None (occurrence: None)
  Receive Date: 20120713
  Receipt Date: 20120713
  Transmission Date: 20120928
  Serious: Yes (Disabling)
  Sender: FDA-Public Use
  Company Number: None

PATIENT
  Age: 40 Year
  Sex: Male
  Weight: 69.4003 kg

DRUGS (1)
  1. PROPECIA [Suspect]
     Indication: COGNITIVE DISORDER
     Dosage: 1MG DAILY

REACTIONS (7)
  - MEMORY IMPAIRMENT [None]
  - ANXIETY [None]
  - DYSARTHRIA [None]
  - STRESS [None]
  - INCOHERENT [None]
  - COGNITIVE DISORDER [None]
  - FEELING ABNORMAL [None]
